FAERS Safety Report 20113181 (Version 4)
Quarter: 2022Q1

REPORT INFORMATION
  Report Type: Spontaneous
  Country: PE (occurrence: PE)
  Receive Date: 20211125
  Receipt Date: 20220103
  Transmission Date: 20220423
  Serious: Yes (Other)
  Sender: FDA-Public Use
  Company Number: PE-PFIZER INC-202101557868

PATIENT
  Age: 71 Year
  Sex: Female

DRUGS (9)
  1. ENBREL [Suspect]
     Active Substance: ETANERCEPT
     Indication: Arthritis
     Dosage: 50 MG, WEEKLY
     Route: 065
     Dates: start: 202108, end: 2021
  2. ENBREL [Suspect]
     Active Substance: ETANERCEPT
     Dosage: 50 MG, WEEKLY
     Route: 065
     Dates: start: 20211110, end: 20211126
  3. LOSARTAN [Concomitant]
     Active Substance: LOSARTAN
     Indication: Hypertension
     Dosage: UNK
     Dates: end: 202110
  4. VALSARTAN [Concomitant]
     Active Substance: VALSARTAN
     Indication: Hypertension
     Dosage: 1DF IN THE MORNING - 1DF IN THE NIGHT
     Dates: start: 202110
  5. SPIRONOLACTONE [Concomitant]
     Active Substance: SPIRONOLACTONE
     Indication: Hypertension
     Dosage: 1/2DF, DAILY
     Dates: start: 202110
  6. LEVOTHYROXINE [Concomitant]
     Active Substance: LEVOTHYROXINE
     Indication: Hypothyroidism
     Dosage: 1DF, DAILY (IN THE MORNING)
  7. BISOPROLOL [Concomitant]
     Active Substance: BISOPROLOL
     Indication: Hypertension
     Dosage: 1/2DF, DAILY
  8. HYDROCHLOROTHIAZIDE [Concomitant]
     Active Substance: HYDROCHLOROTHIAZIDE
     Indication: Hypertension
     Dosage: 1/2DF, DAILY
  9. NIFEDIPINE [Concomitant]
     Active Substance: NIFEDIPINE
     Indication: Hypertension
     Dosage: UNK

REACTIONS (16)
  - Pain in extremity [Unknown]
  - Sciatic nerve injury [Unknown]
  - Gait disturbance [Unknown]
  - Spinal disorder [Unknown]
  - Intervertebral disc protrusion [Unknown]
  - Abdominal pain upper [Recovering/Resolving]
  - Thermal burns of eye [Unknown]
  - Loss of personal independence in daily activities [Unknown]
  - Dizziness [Unknown]
  - Somnolence [Unknown]
  - Depressed mood [Unknown]
  - Malaise [Unknown]
  - Injection site pain [Unknown]
  - Blood cholesterol increased [Unknown]
  - Nervousness [Unknown]
  - Lacrimation increased [Unknown]

NARRATIVE: CASE EVENT DATE: 20210101
